FAERS Safety Report 5405102-9 (Version None)
Quarter: 2007Q3

REPORT INFORMATION
  Report Type: 
  Country: None (occurrence: None)
  Receive Date: 20070803
  Receipt Date: 20070724
  Transmission Date: 20080115
  Serious: Yes (Other)
  Sender: FDA-Public Use
  Company Number: GB-ROCHE-509458

PATIENT
  Age: 46 Year
  Sex: Female
  Weight: 92 kg

DRUGS (3)
  1. XENICAL [Suspect]
     Indication: OBESITY
     Route: 048
     Dates: start: 20070713, end: 20070723
  2. BACLOFEN [Concomitant]
     Indication: MULTIPLE SCLEROSIS
  3. UNSPECIFIED MEDICATION [Concomitant]
     Indication: ARTHRITIS

REACTIONS (1)
  - HAEMATOCHEZIA [None]
